FAERS Safety Report 8955082 (Version 1)
Quarter: 2012Q4

REPORT INFORMATION
  Report Type: Spontaneous
  Country: CA (occurrence: None)
  Receive Date: 20121130
  Receipt Date: 20121130
  Transmission Date: 20130627
  Serious: Yes (Other)
  Sender: FDA-Public Use
  Company Number: DOXY20120006

PATIENT
  Age: 48 Year
  Sex: Male

DRUGS (2)
  1. DOXYCYCLINE HYCLATE [Suspect]
     Indication: Q FEVER
     Route: 048
  2. TADALAFIL [Suspect]

REACTIONS (3)
  - Venoocclusive liver disease [None]
  - Hepatomegaly [None]
  - Ascites [None]
